FAERS Safety Report 8286596-0 (Version None)
Quarter: 2012Q2

REPORT INFORMATION
  Report Type: 
  Country: None (occurrence: None)
  Receive Date: 20120416
  Receipt Date: 20120405
  Transmission Date: 20120825
  Serious: Yes (Other)
  Sender: FDA-Public Use
  Company Number: US-JNJFOC-20120403087

PATIENT
  Sex: Female
  Weight: 86.18 kg

DRUGS (2)
  1. STELARA [Suspect]
     Indication: PSORIASIS
     Route: 058
     Dates: start: 20101213
  2. ANTI-HYPERTENSIVE [Concomitant]
     Indication: HYPERTENSION
     Route: 065

REACTIONS (8)
  - WOUND DEHISCENCE [None]
  - TRACHEOSTOMY [None]
  - POST PROCEDURAL COMPLICATION [None]
  - DISORIENTATION [None]
  - INCISION SITE INFECTION [None]
  - INCOHERENT [None]
  - AGITATION [None]
  - GASTRIC BYPASS [None]
